FAERS Safety Report 7623264-X (Version None)
Quarter: 2011Q3

REPORT INFORMATION
  Report Type: 
  Country: None (occurrence: None)
  Receive Date: 20110719
  Receipt Date: 20110719
  Transmission Date: 20111222
  Serious: Yes (Other)
  Sender: FDA-Public Use
  Company Number: None

PATIENT
  Sex: Female
  Weight: 57.6068 kg

DRUGS (2)
  1. PREDNISONE [Suspect]
     Indication: CATARACT
     Dosage: 1 DROP 4 X DAILY
     Dates: start: 20110204
  2. PREDNISONE [Suspect]
     Indication: POSTOPERATIVE CARE
     Dosage: 1 DROP 4 X DAILY
     Dates: start: 20110204

REACTIONS (1)
  - NAUSEA [None]
